FAERS Safety Report 10030612 (Version 1)
Quarter: 2014Q1

REPORT INFORMATION
  Report Type: Spontaneous
  Country: US (occurrence: US)
  Receive Date: 20140323
  Receipt Date: 20140323
  Transmission Date: 20141002
  Serious: No
  Sender: FDA-Public Use
  Company Number: US-ALLERGAN-1318182US

PATIENT
  Age: 62 Year
  Sex: Female

DRUGS (3)
  1. LATISSE 0.03% [Suspect]
     Indication: GROWTH OF EYELASHES
     Dosage: 2 GTT, QHS
     Route: 061
     Dates: start: 20131114, end: 20131116
  2. HYPERTENSION MEDICATION [Concomitant]
     Indication: HYPERTENSION
     Dosage: UNK
  3. AMOXICILLIN [Concomitant]
     Indication: DENTAL OPERATION
     Dosage: 500 MG, QID
     Route: 048
     Dates: start: 20131116

REACTIONS (8)
  - Erythema [Unknown]
  - Pruritus [Unknown]
  - Eyelid skin dryness [Unknown]
  - Eye swelling [Recovering/Resolving]
  - Eye swelling [Recovering/Resolving]
  - Ocular hyperaemia [Unknown]
  - Eye pruritus [Unknown]
  - Eyelids pruritus [Unknown]
